FAERS Safety Report 5036576-3 (Version None)
Quarter: 2006Q2

REPORT INFORMATION
  Report Type: 
  Country: None (occurrence: None)
  Receive Date: 20060623
  Receipt Date: 20060613
  Transmission Date: 20061013
  Serious: Yes (Other)
  Sender: FDA-Public Use
  Company Number: 2006076423

PATIENT
  Sex: 0

DRUGS (3)
  1. LIPITOR [Suspect]
     Indication: ILL-DEFINED DISORDER
     Dosage: ORAL
     Route: 048
  2. LANSOPRAZOLE [Concomitant]
  3. FUROSEMIDE [Concomitant]

REACTIONS (1)
  - HEPATITIS FULMINANT [None]
